FAERS Safety Report 9461598 (Version 3)
Quarter: 2022Q1

REPORT INFORMATION
  Report Type: Spontaneous
  Country: FR (occurrence: None)
  Receive Date: 20130816
  Receipt Date: 20220120
  Transmission Date: 20220423
  Serious: Yes (Hospitalization)
  Sender: FDA-Public Use
  Company Number: 2013SE62468

PATIENT
  Age: 24408 Day
  Sex: Male

DRUGS (7)
  1. ESOMEPRAZOLE [Interacting]
     Active Substance: ESOMEPRAZOLE
     Route: 048
  2. METHOTREXATE (METHOTREXATE SODIUM) [Interacting]
     Active Substance: METHOTREXATE SODIUM
     Indication: Diffuse large B-cell lymphoma
     Dosage: 6.0G ONCE/SINGLE ADMINISTRATION
     Route: 041
     Dates: start: 20130720, end: 20130720
  3. METHOTREXATE (METHOTREXATE SODIUM) [Interacting]
     Active Substance: METHOTREXATE SODIUM
     Indication: Diffuse large B-cell lymphoma
     Dosage: 6400.0MG ONCE/SINGLE ADMINISTRATION
     Route: 041
     Dates: start: 20130814, end: 20130814
  4. CEFTRIAXONE SODIUM [Interacting]
     Active Substance: CEFTRIAXONE SODIUM
     Route: 065
     Dates: start: 20130719, end: 20130720
  5. KEPPRA [Concomitant]
     Active Substance: LEVETIRACETAM
  6. ESCITALOPRAM OXALATE [Concomitant]
     Active Substance: ESCITALOPRAM OXALATE
  7. MEDROL [Concomitant]
     Active Substance: METHYLPREDNISOLONE

REACTIONS (3)
  - Drug interaction [Unknown]
  - Acute kidney injury [Recovered/Resolved]
  - Chemotherapeutic drug level above therapeutic [Recovered/Resolved]

NARRATIVE: CASE EVENT DATE: 20130721
